FAERS Safety Report 16427619 (Version 2)
Quarter: 2020Q1

REPORT INFORMATION
  Report Type: Spontaneous
  Country: US (occurrence: US)
  Receive Date: 20190613
  Receipt Date: 20200102
  Transmission Date: 20200409
  Serious: No
  Sender: FDA-Public Use
  Company Number: US-BAUSCH-BL-2019-016469

PATIENT
  Sex: Male
  Weight: 76.73 kg

DRUGS (6)
  1. MESTINON [Suspect]
     Active Substance: PYRIDOSTIGMINE BROMIDE
     Indication: MYASTHENIA GRAVIS
     Dosage: SOMEWHERE IN MAY 2019
     Route: 048
     Dates: start: 201905, end: 201905
  2. MESTINON [Suspect]
     Active Substance: PYRIDOSTIGMINE BROMIDE
     Route: 048
     Dates: start: 201905
  3. FUROSEMIDE. [Concomitant]
     Active Substance: FUROSEMIDE
     Indication: PRODUCT USED FOR UNKNOWN INDICATION
  4. HYDROCODONE [Concomitant]
     Active Substance: HYDROCODONE
     Indication: BACK PAIN
  5. TAMSULOSIN [Concomitant]
     Active Substance: TAMSULOSIN
     Indication: MALE REPRODUCTIVE TRACT DISORDER
  6. CIALIS [Concomitant]
     Active Substance: TADALAFIL
     Indication: PRODUCT USED FOR UNKNOWN INDICATION

REACTIONS (9)
  - Constipation [Recovering/Resolving]
  - Pollakiuria [Recovering/Resolving]
  - Intentional product use issue [Unknown]
  - Treatment noncompliance [Unknown]
  - Rhinorrhoea [Recovering/Resolving]
  - Weight decreased [Unknown]
  - Body height decreased [Unknown]
  - Inability to afford medication [Unknown]
  - Fatigue [Recovering/Resolving]

NARRATIVE: CASE EVENT DATE: 2019
